FAERS Safety Report 16455468 (Version 2)
Quarter: 2019Q3

REPORT INFORMATION
  Report Type: Report from Study
  Country: CA (occurrence: CA)
  Receive Date: 20190620
  Receipt Date: 20190819
  Transmission Date: 20191004
  Serious: Yes (Life-Threatening, Other)
  Sender: FDA-Public Use
  Company Number: CA-BIOGEN-2019BI00752495

PATIENT
  Sex: Female

DRUGS (1)
  1. TYSABRI [Suspect]
     Active Substance: NATALIZUMAB
     Indication: MULTIPLE SCLEROSIS
     Dosage: INFUSED OVER 1 HOUR
     Route: 042
     Dates: start: 20080717, end: 20131028

REACTIONS (2)
  - Skin cancer [Not Recovered/Not Resolved]
  - Nasal cavity cancer [Not Recovered/Not Resolved]

NARRATIVE: CASE EVENT DATE: 2019
